FAERS Safety Report 9040191 (Version 1)
Quarter: 2013Q1

REPORT INFORMATION
  Report Type: Report from Study
  Country: US (occurrence: US)
  Receive Date: 20130129
  Receipt Date: 20130129
  Transmission Date: 20140127
  Serious: No
  Sender: FDA-Public Use
  Company Number: US-ABBOTT-11P-163-0878987-00

PATIENT
  Age: 46 Year
  Sex: Female

DRUGS (3)
  1. HUMIRA 40 MG/0.8 ML PEN [Suspect]
     Indication: PSORIASIS
     Dates: start: 20111016
  2. IBUPROFEN [Suspect]
     Indication: NASOPHARYNGITIS
  3. OMEPRAZOLE [Concomitant]
     Indication: GASTROOESOPHAGEAL REFLUX DISEASE

REACTIONS (9)
  - Nasopharyngitis [Recovering/Resolving]
  - Upper respiratory tract congestion [Unknown]
  - Sneezing [Unknown]
  - Cough [Unknown]
  - Injection site pain [Unknown]
  - Injection site bruising [Unknown]
  - Fungal infection [Unknown]
  - Epistaxis [Unknown]
  - Back pain [Recovered/Resolved]
